FAERS Safety Report 13390416 (Version 1)
Quarter: 2017Q1

REPORT INFORMATION
  Report Type: Spontaneous
  Country: US (occurrence: US)
  Receive Date: 20170331
  Receipt Date: 20170331
  Transmission Date: 20170429
  Serious: No
  Sender: FDA-Public Use
  Company Number: US-PFIZER INC-2017139858

PATIENT
  Age: 40 Year
  Sex: Female
  Weight: 68.4 kg

DRUGS (1)
  1. DEPO-ESTRADIOL [Suspect]
     Active Substance: ESTRADIOL CYPIONATE
     Indication: UTERINE DISORDER
     Dosage: 0.05 ML, EVERY OTHER WEEK
     Dates: start: 2014

REACTIONS (3)
  - Product quality issue [Unknown]
  - Fatigue [Not Recovered/Not Resolved]
  - Arthralgia [Not Recovered/Not Resolved]

NARRATIVE: CASE EVENT DATE: 201703
